FAERS Safety Report 12454762 (Version 1)
Quarter: 2016Q2

REPORT INFORMATION
  Report Type: Spontaneous
  Country: US (occurrence: None)
  Receive Date: 20160609
  Receipt Date: 20160609
  Transmission Date: 20160815
  Serious: Yes (Disabling, Other)
  Sender: FDA-Public Use
  Company Number: None

PATIENT
  Age: 39 Year
  Sex: Male
  Weight: 145.15 kg

DRUGS (11)
  1. KETOROLAC [Concomitant]
     Active Substance: KETOROLAC\KETOROLAC TROMETHAMINE
  2. HYDRACODIN [Concomitant]
  3. ODANSETRON [Concomitant]
     Active Substance: ONDANSETRON
  4. PREDNISONE. [Concomitant]
     Active Substance: PREDNISONE
  5. KENALOG [Suspect]
     Active Substance: TRIAMCINOLONE ACETONIDE
     Indication: SEASONAL ALLERGY
     Dates: start: 20160226
  6. GABAPENTIN. [Concomitant]
     Active Substance: GABAPENTIN
  7. PREDNISLONE [Concomitant]
  8. ALPRAZOHN [Concomitant]
  9. ALCON [Concomitant]
  10. VIGAMOX [Concomitant]
     Active Substance: MOXIFLOXACIN HYDROCHLORIDE
  11. RESTASIS [Concomitant]
     Active Substance: CYCLOSPORINE

REACTIONS (9)
  - Amnesia [None]
  - Anxiety [None]
  - Eye pain [None]
  - Blindness [None]
  - Headache [None]
  - Photophobia [None]
  - Dizziness [None]
  - Depression [None]
  - Nausea [None]

NARRATIVE: CASE EVENT DATE: 20160228
